FAERS Safety Report 9156654 (Version 1)
Quarter: 2013Q1

REPORT INFORMATION
  Report Type: Spontaneous
  Country: US (occurrence: None)
  Receive Date: 20130307
  Receipt Date: 20130307
  Transmission Date: 20140127
  Serious: Yes (Life-Threatening, Hospitalization)
  Sender: FDA-Public Use
  Company Number: None

PATIENT
  Age: 69 Year
  Sex: Male
  Weight: 84 kg

DRUGS (1)
  1. AMIODARONE [Suspect]
     Indication: VENTRICULAR TACHYCARDIA
     Route: 048
     Dates: start: 20121224, end: 20130227

REACTIONS (1)
  - Acute interstitial pneumonitis [None]
